FAERS Safety Report 10226324 (Version 1)
Quarter: 2014Q2

REPORT INFORMATION
  Report Type: Spontaneous
  Country: BR (occurrence: BR)
  Receive Date: 20140609
  Receipt Date: 20140609
  Transmission Date: 20141212
  Serious: Yes (Death)
  Sender: FDA-Public Use
  Company Number: BR-BAXTER-2014BAX028328

PATIENT
  Sex: 0

DRUGS (8)
  1. GENUXAL [Suspect]
     Indication: ACUTE PROMYELOCYTIC LEUKAEMIA
     Route: 042
  2. GENUXAL [Suspect]
     Indication: PROPHYLAXIS AGAINST GRAFT VERSUS HOST DISEASE
     Route: 042
  3. MITEXAN [Suspect]
     Indication: ACUTE PROMYELOCYTIC LEUKAEMIA
  4. FLUDARABINE [Suspect]
     Indication: ACUTE PROMYELOCYTIC LEUKAEMIA
     Route: 065
  5. MYCOPHENOLATE MOFETIL [Suspect]
     Indication: PROPHYLAXIS AGAINST GRAFT VERSUS HOST DISEASE
     Route: 048
  6. TACROLIMUS [Suspect]
     Indication: PROPHYLAXIS AGAINST GRAFT VERSUS HOST DISEASE
     Dosage: BETWEEN 5 AND 10 G/ML
     Route: 065
  7. FLUCONAZOLE [Concomitant]
     Indication: ANTIBIOTIC PROPHYLAXIS
     Route: 065
  8. ACYCLOVIR [Concomitant]
     Indication: ANTIBIOTIC PROPHYLAXIS
     Route: 065

REACTIONS (1)
  - Transplant rejection [Fatal]
